FAERS Safety Report 7141338-7 (Version None)
Quarter: 2010Q4

REPORT INFORMATION
  Report Type: 
  Country: None (occurrence: None)
  Receive Date: 20101207
  Receipt Date: 20101123
  Transmission Date: 20110411
  Serious: Yes (Hospitalization)
  Sender: FDA-Public Use
  Company Number: PHHY2010CA76109

PATIENT
  Sex: Female

DRUGS (4)
  1. ALISKIREN ALI+ [Suspect]
     Dosage: UNK
     Dates: end: 20100628
  2. DIURETICS [Concomitant]
  3. BETA BLOCKING AGENTS [Concomitant]
  4. ANGIOTENSIN II ANTAGONISTS [Suspect]

REACTIONS (1)
  - PANCREATITIS [None]
